FAERS Safety Report 25859001 (Version 1)
Quarter: 2025Q3

REPORT INFORMATION
  Report Type: Spontaneous
  Country: IN (occurrence: IN)
  Receive Date: 20250929
  Receipt Date: 20250929
  Transmission Date: 20251021
  Serious: Yes (Other)
  Sender: MYLAN
  Company Number: IN-MYLANLABS-2025M1082091

PATIENT
  Age: 42 Year
  Sex: Female

DRUGS (32)
  1. PACLITAXEL [Suspect]
     Active Substance: PACLITAXEL
     Indication: Ovarian cancer
  2. PACLITAXEL [Suspect]
     Active Substance: PACLITAXEL
     Indication: Metastases to pelvis
     Route: 065
  3. PACLITAXEL [Suspect]
     Active Substance: PACLITAXEL
     Route: 065
  4. PACLITAXEL [Suspect]
     Active Substance: PACLITAXEL
  5. CARBOPLATIN [Suspect]
     Active Substance: CARBOPLATIN
     Indication: Ovarian cancer
  6. CARBOPLATIN [Suspect]
     Active Substance: CARBOPLATIN
     Indication: Metastases to pelvis
     Route: 065
  7. CARBOPLATIN [Suspect]
     Active Substance: CARBOPLATIN
     Route: 065
  8. CARBOPLATIN [Suspect]
     Active Substance: CARBOPLATIN
  9. LETROZOLE [Suspect]
     Active Substance: LETROZOLE
     Indication: Ovarian cancer
  10. LETROZOLE [Suspect]
     Active Substance: LETROZOLE
     Indication: Metastases to pelvis
     Route: 065
  11. LETROZOLE [Suspect]
     Active Substance: LETROZOLE
     Route: 065
  12. LETROZOLE [Suspect]
     Active Substance: LETROZOLE
  13. GEMCITABINE [Suspect]
     Active Substance: GEMCITABINE
     Indication: Ovarian cancer
  14. GEMCITABINE [Suspect]
     Active Substance: GEMCITABINE
     Indication: Metastases to pelvis
     Route: 065
  15. GEMCITABINE [Suspect]
     Active Substance: GEMCITABINE
     Route: 065
  16. GEMCITABINE [Suspect]
     Active Substance: GEMCITABINE
  17. ETOPOSIDE [Suspect]
     Active Substance: ETOPOSIDE
     Indication: Ovarian cancer
  18. ETOPOSIDE [Suspect]
     Active Substance: ETOPOSIDE
     Indication: Metastases to pelvis
     Route: 065
  19. ETOPOSIDE [Suspect]
     Active Substance: ETOPOSIDE
     Route: 065
  20. ETOPOSIDE [Suspect]
     Active Substance: ETOPOSIDE
  21. CISPLATIN [Suspect]
     Active Substance: CISPLATIN
     Indication: Ovarian cancer
  22. CISPLATIN [Suspect]
     Active Substance: CISPLATIN
     Indication: Metastases to pelvis
     Route: 065
  23. CISPLATIN [Suspect]
     Active Substance: CISPLATIN
     Route: 065
  24. CISPLATIN [Suspect]
     Active Substance: CISPLATIN
  25. DOXORUBICIN [Suspect]
     Active Substance: DOXORUBICIN
     Indication: Ovarian cancer
  26. DOXORUBICIN [Suspect]
     Active Substance: DOXORUBICIN
     Indication: Metastases to pelvis
     Route: 065
  27. DOXORUBICIN [Suspect]
     Active Substance: DOXORUBICIN
     Route: 065
  28. DOXORUBICIN [Suspect]
     Active Substance: DOXORUBICIN
  29. CYCLOPHOSPHAMIDE [Suspect]
     Active Substance: CYCLOPHOSPHAMIDE
     Indication: Ovarian cancer
  30. CYCLOPHOSPHAMIDE [Suspect]
     Active Substance: CYCLOPHOSPHAMIDE
     Indication: Metastases to pelvis
     Route: 065
  31. CYCLOPHOSPHAMIDE [Suspect]
     Active Substance: CYCLOPHOSPHAMIDE
     Route: 065
  32. CYCLOPHOSPHAMIDE [Suspect]
     Active Substance: CYCLOPHOSPHAMIDE

REACTIONS (2)
  - Drug ineffective [Unknown]
  - Disease progression [Unknown]
